FAERS Safety Report 7400807-2 (Version None)
Quarter: 2011Q2

REPORT INFORMATION
  Report Type: 
  Country: None (occurrence: None)
  Receive Date: 20110407
  Receipt Date: 20110321
  Transmission Date: 20111010
  Serious: Yes (Hospitalization)
  Sender: FDA-Public Use
  Company Number: US-BAYER-201031977NA

PATIENT
  Sex: Female
  Weight: 86.9 kg

DRUGS (12)
  1. PROMETHAZINE [Concomitant]
  2. ALEVE [Concomitant]
     Dosage: UNK UNK, PRN
     Route: 048
  3. YAZ [Suspect]
     Indication: PRODUCT USED FOR UNKNOWN INDICATION
     Route: 048
     Dates: start: 20090601, end: 20090801
  4. IBUPROFEN [Concomitant]
  5. TRAZODONE HCL [Concomitant]
     Dosage: 50 MG, HS
     Route: 048
  6. TESSALON [Concomitant]
  7. ALBUTEROL [Concomitant]
     Route: 045
  8. ALPRAZOLAM [Concomitant]
     Dosage: UNK UNK, PRN
  9. AVELOX [Concomitant]
  10. CELEXA [Concomitant]
     Dosage: 20 MG, QD
     Route: 048
  11. XANAX [Concomitant]
     Dosage: 0.25 MG, PRN
     Route: 048
  12. ZITHROMAX [Concomitant]

REACTIONS (1)
  - PULMONARY EMBOLISM [None]
